FAERS Safety Report 24235893 (Version 1)
Quarter: 2024Q3

REPORT INFORMATION
  Report Type: Spontaneous
  Country: US (occurrence: None)
  Receive Date: 20240822
  Receipt Date: 20240822
  Transmission Date: 20241016
  Serious: Yes (Other)
  Sender: ASTRAZENECA
  Company Number: 2024A186040

PATIENT
  Sex: Female

DRUGS (1)
  1. TAGRISSO [Suspect]
     Active Substance: OSIMERTINIB
     Route: 048
     Dates: start: 202404

REACTIONS (5)
  - Dyspnoea exertional [Unknown]
  - Renal injury [Unknown]
  - Somnolence [Unknown]
  - Fatigue [Unknown]
  - Diarrhoea [Unknown]
